FAERS Safety Report 8725767 (Version 2)
Quarter: 2013Q1

REPORT INFORMATION
  Report Type: Spontaneous
  Country: US (occurrence: US)
  Receive Date: 20120816
  Receipt Date: 20130220
  Transmission Date: 20140127
  Serious: No
  Sender: FDA-Public Use
  Company Number: US-009507513-1208USA002614

PATIENT
  Sex: Male

DRUGS (1)
  1. COPPERTONE ULTRAGUARD LOTION SPF-70+ [Suspect]
     Indication: PRODUCT USED FOR UNKNOWN INDICATION
     Dosage: UNK, UNKNOWN
     Route: 048

REACTIONS (3)
  - Sunburn [Unknown]
  - Rash macular [Unknown]
  - Nonspecific reaction [Unknown]
